FAERS Safety Report 11242853 (Version 1)
Quarter: 2015Q3

REPORT INFORMATION
  Report Type: Report from Study
  Country: US (occurrence: US)
  Receive Date: 20150707
  Receipt Date: 20150707
  Transmission Date: 20151125
  Serious: Yes (Life-Threatening, Hospitalization, Other)
  Sender: FDA-Public Use
  Company Number: US-ROCHE-1163573

PATIENT
  Age: 4 Year
  Sex: Female
  Weight: 21.9 kg

DRUGS (15)
  1. BEVACIZUMAB [Suspect]
     Active Substance: BEVACIZUMAB
     Indication: BRAIN STEM GLIOMA
     Dosage: (D15, 29, 43)
     Route: 042
     Dates: start: 20120726
  2. OXYCODONE [Concomitant]
     Active Substance: OXYCODONE
     Route: 065
     Dates: start: 20120810, end: 20120829
  3. BEVACIZUMAB [Suspect]
     Active Substance: BEVACIZUMAB
     Dosage: (D15, 29, 43)
     Route: 042
     Dates: start: 20120809
  4. PREVACID [Concomitant]
     Active Substance: LANSOPRAZOLE
     Dosage: DAILY
     Route: 065
     Dates: start: 20120723
  5. ZOFRAN [Concomitant]
     Active Substance: ONDANSETRON HYDROCHLORIDE
     Route: 065
     Dates: start: 20120710
  6. COLACE [Concomitant]
     Active Substance: DOCUSATE SODIUM
     Dosage: DAILY
     Route: 065
     Dates: start: 20120721
  7. ZANTAC [Concomitant]
     Active Substance: RANITIDINE HYDROCHLORIDE
     Dosage: DAILY
     Route: 065
     Dates: start: 20120711, end: 20120906
  8. VALIUM [Concomitant]
     Active Substance: DIAZEPAM
     Route: 065
     Dates: start: 20120725, end: 20120920
  9. BACLOFEN. [Concomitant]
     Active Substance: BACLOFEN
     Dosage: DAILY
     Route: 065
     Dates: start: 20120719
  10. OLANZAPINE. [Concomitant]
     Active Substance: OLANZAPINE
     Dosage: DAILY
     Route: 065
     Dates: start: 20120725, end: 20120920
  11. MIRALAX [Concomitant]
     Active Substance: POLYETHYLENE GLYCOL 3350
     Dosage: DAILY
     Route: 065
     Dates: start: 20120710
  12. BEVACIZUMAB [Suspect]
     Active Substance: BEVACIZUMAB
     Dosage: (D15, 29, 43)
     Route: 042
     Dates: start: 20120829
  13. DEXAMETHASONE. [Concomitant]
     Active Substance: DEXAMETHASONE
     Dosage: DAILY
     Route: 065
     Dates: start: 20120711
  14. SENNOSIDES. [Concomitant]
     Active Substance: SENNOSIDES
     Route: 065
     Dates: start: 20120718
  15. FLUCONAZOLE. [Concomitant]
     Active Substance: FLUCONAZOLE
     Dosage: DAILY
     Route: 065
     Dates: start: 20120803, end: 20120919

REACTIONS (8)
  - Hydrocephalus [Unknown]
  - Respiratory tract haemorrhage [Unknown]
  - Peripheral motor neuropathy [Unknown]
  - Urinary tract infection [Unknown]
  - Constipation [Unknown]
  - Urinary tract infection [Unknown]
  - Peripheral sensorimotor neuropathy [Unknown]
  - Pulmonary haemorrhage [Unknown]

NARRATIVE: CASE EVENT DATE: 20120824
